FAERS Safety Report 17647058 (Version 2)
Quarter: 2020Q2

REPORT INFORMATION
  Report Type: Spontaneous
  Country: DE (occurrence: DE)
  Receive Date: 20200408
  Receipt Date: 20200616
  Transmission Date: 20200713
  Serious: Yes (Hospitalization)
  Sender: FDA-Public Use
  Company Number: DE-009507513-2004DEU001703

PATIENT
  Age: 16 Year
  Sex: Male

DRUGS (3)
  1. IBUPROFEN. [Suspect]
     Active Substance: IBUPROFEN
     Dosage: 600 MG
     Route: 048
     Dates: start: 20191202, end: 20191202
  2. TRIMIPRAMINE [Suspect]
     Active Substance: TRIMIPRAMINE
     Dosage: 25 MG
     Route: 048
     Dates: start: 20191202, end: 20191202
  3. MIRTAZAPINE. [Suspect]
     Active Substance: MIRTAZAPINE
     Dosage: 15 MG
     Route: 048
     Dates: start: 20191202, end: 20191202

REACTIONS (3)
  - Somnolence [Recovered/Resolved]
  - Prescription drug used without a prescription [Recovered/Resolved]
  - Toxicity to various agents [Recovered/Resolved]

NARRATIVE: CASE EVENT DATE: 20191202
